FAERS Safety Report 7514113-9 (Version None)
Quarter: 2011Q2

REPORT INFORMATION
  Report Type: 
  Country: None (occurrence: None)
  Receive Date: 20110531
  Receipt Date: 20101101
  Transmission Date: 20111010
  Serious: No
  Sender: FDA-Public Use
  Company Number: US-BAYER-201039531NA

PATIENT
  Age: 24 Year
  Sex: Female

DRUGS (1)
  1. AVELOX [Suspect]
     Indication: TOOTHACHE
     Dosage: 400 MG, UNK
     Route: 048
     Dates: start: 20101001, end: 20101001

REACTIONS (5)
  - HYPERSENSITIVITY [None]
  - PYREXIA [None]
  - VOMITING [None]
  - URTICARIA [None]
  - PRURITUS [None]
